FAERS Safety Report 12376803 (Version 1)
Quarter: 2016Q2

REPORT INFORMATION
  Report Type: Report from Study
  Country: US (occurrence: US)
  Receive Date: 20160517
  Receipt Date: 20160517
  Transmission Date: 20160815
  Serious: No
  Sender: FDA-Public Use
  Company Number: US-MALLINCKRODT-T201503273

PATIENT
  Sex: Male

DRUGS (1)
  1. REPOSITORY CORTICOTROPIN INJECTION [Suspect]
     Active Substance: CORTICOTROPIN
     Indication: POLYMYOSITIS
     Dosage: 80 UNITS ONCE WKLY
     Route: 030
     Dates: start: 20150213

REACTIONS (4)
  - Sleep disorder [Unknown]
  - Muscle atrophy [Unknown]
  - Weight decreased [Unknown]
  - Gastrointestinal motility disorder [Unknown]
